FAERS Safety Report 23652637 (Version 1)
Quarter: 2024Q1

REPORT INFORMATION
  Report Type: Spontaneous
  Country: US (occurrence: US)
  Receive Date: 20240320
  Receipt Date: 20240320
  Transmission Date: 20240410
  Serious: Yes (Other)
  Sender: FDA-Public Use
  Company Number: US-MYLANLABS-2024M1025699

PATIENT
  Age: 15 Year
  Sex: Female

DRUGS (8)
  1. IFOSFAMIDE [Suspect]
     Active Substance: IFOSFAMIDE
     Indication: Primary mediastinal large B-cell lymphoma
     Dosage: UNK UNK, CYCLE, RECEIVED 4 CYCLES OF ICE
     Route: 065
  2. CARBOPLATIN [Suspect]
     Active Substance: CARBOPLATIN
     Indication: Primary mediastinal large B-cell lymphoma
     Dosage: UNK, CYCLE, RECEIVED 4 CYCLES OF ICE
     Route: 065
  3. ETOPOSIDE [Suspect]
     Active Substance: ETOPOSIDE
     Indication: Primary mediastinal large B-cell lymphoma
     Dosage: UNK, CYCLE, RECEIVED 4 CYCLES OF ICE
     Route: 065
  4. MELPHALAN [Suspect]
     Active Substance: MELPHALAN
     Indication: Primary mediastinal large B-cell lymphoma
     Dosage: UNK, CYCLE, RECEIVED 2 CYCLES OF R-CYM
     Route: 065
  5. PEMBROLIZUMAB [Suspect]
     Active Substance: PEMBROLIZUMAB
     Indication: Primary mediastinal large B-cell lymphoma
     Dosage: UNK UNK, CYCLE, RECEIVED 4 CYCLES OF ICE
     Route: 065
  6. PEMBROLIZUMAB [Suspect]
     Active Substance: PEMBROLIZUMAB
     Dosage: UNK UNK, CYCLE, RECEIVED 2 CYCLES OF R-CYM
     Route: 065
  7. CYCLOPHOSPHAMIDE [Suspect]
     Active Substance: CYCLOPHOSPHAMIDE
     Indication: Primary mediastinal large B-cell lymphoma
     Dosage: UNK UNK, CYCLE, RECEIVED 2 CYCLES OF R-CYM
     Route: 065
  8. FLUDARABINE [Concomitant]
     Active Substance: FLUDARABINE PHOSPHATE
     Indication: Primary mediastinal large B-cell lymphoma
     Dosage: 30 MILLIGRAM/SQ. METER
     Route: 065

REACTIONS (2)
  - Drug ineffective [Unknown]
  - Off label use [Unknown]
